FAERS Safety Report 9756159 (Version 1)
Quarter: 2013Q4

REPORT INFORMATION
  Report Type: Spontaneous
  Country: US (occurrence: US)
  Receive Date: 20131213
  Receipt Date: 20131213
  Transmission Date: 20140711
  Serious: No
  Sender: FDA-Public Use
  Company Number: US-GLAXOSMITHKLINE-A1033908A

PATIENT
  Age: 68 Year
  Sex: Female

DRUGS (4)
  1. NICODERM CQ CLEAR 14MG [Suspect]
     Indication: EX-TOBACCO USER
     Dosage: 14MG PER DAY
     Route: 062
     Dates: start: 20130609
  2. NICODERM CQ CLEAR 7MG [Suspect]
     Indication: EX-TOBACCO USER
     Dosage: 7MG PER DAY
     Route: 062
  3. XANAX [Suspect]
  4. UNSPECIFIED INGREDIENT [Suspect]
     Indication: ASTHMA

REACTIONS (3)
  - Nervousness [Not Recovered/Not Resolved]
  - Crying [Not Recovered/Not Resolved]
  - Drug interaction [Not Recovered/Not Resolved]
